FAERS Safety Report 6871861-1 (Version None)
Quarter: 2010Q3

REPORT INFORMATION
  Report Type: 
  Country: None (occurrence: None)
  Receive Date: 20100723
  Receipt Date: 20100714
  Transmission Date: 20110219
  Serious: Yes (Other)
  Sender: FDA-Public Use
  Company Number: JP-PFIZER INC-2010089032

PATIENT
  Age: 54 Year
  Sex: Male

DRUGS (2)
  1. LIPITOR [Suspect]
     Dosage: UNK
     Route: 048
     Dates: start: 20081001, end: 20081101
  2. GASTER [Suspect]
     Dosage: UNK
     Route: 048
     Dates: start: 20081001, end: 20081101

REACTIONS (1)
  - LIVER DISORDER [None]
